FAERS Safety Report 9717808 (Version 1)
Quarter: 2013Q4

REPORT INFORMATION
  Report Type: Spontaneous
  Country: US (occurrence: US)
  Receive Date: 20131125
  Receipt Date: 20131125
  Transmission Date: 20140711
  Serious: No
  Sender: FDA-Public Use
  Company Number: US-VIVUS-2012V1000232

PATIENT
  Age: 69 Year
  Sex: Male
  Weight: 117.59 kg

DRUGS (6)
  1. QSYMIA 3.75MG/23MG [Suspect]
     Indication: WEIGHT DECREASED
     Route: 048
     Dates: start: 20121004, end: 20121017
  2. QSYMIA 3.75MG/23MG [Suspect]
     Indication: DIABETES MELLITUS
  3. QSYMIA 7.5MG/46MG [Suspect]
     Indication: WEIGHT DECREASED
     Route: 048
     Dates: start: 20121018
  4. QSYMIA 7.5MG/46MG [Suspect]
     Indication: DIABETES MELLITUS
  5. METFORMIN [Concomitant]
     Indication: DIABETES MELLITUS
     Route: 048
  6. LEVEMIR [Concomitant]
     Indication: DIABETES MELLITUS

REACTIONS (2)
  - Hyperphagia [Not Recovered/Not Resolved]
  - Somnolence [Not Recovered/Not Resolved]
